FAERS Safety Report 13742265 (Version 2)
Quarter: 2017Q4

REPORT INFORMATION
  Report Type: Report from Study
  Country: JP (occurrence: JP)
  Receive Date: 20170711
  Receipt Date: 20171005
  Transmission Date: 20180320
  Serious: Yes (Other)
  Sender: FDA-Public Use
  Company Number: JP-JT-EVA201701842KERYXP-001

PATIENT
  Age: 63 Year
  Sex: Male

DRUGS (11)
  1. ATELEC [Concomitant]
     Active Substance: CILNIDIPINE
     Dosage: 20 MG, QD
     Route: 048
     Dates: start: 20140728
  2. RIONA [Suspect]
     Active Substance: FERRIC CITRATE ANHYDROUS
     Dosage: 750 MG, QD
     Route: 048
     Dates: start: 20170411, end: 20170619
  3. TRAZENTA [Concomitant]
     Active Substance: LINAGLIPTIN
     Dosage: 5 MG, QD
     Route: 048
     Dates: start: 20140728
  4. MYSER                              /00115501/ [Concomitant]
     Active Substance: CYCLOSERINE
     Dosage: UNK
     Route: 003
     Dates: start: 20170425
  5. RIONA [Suspect]
     Active Substance: FERRIC CITRATE ANHYDROUS
     Indication: HYPERPHOSPHATAEMIA
     Dosage: 1500 MG, QD
     Route: 048
     Dates: start: 20170316, end: 20170410
  6. RASILEZ [Concomitant]
     Active Substance: ALISKIREN
     Dosage: 300 MG, QD
     Route: 048
     Dates: start: 20151013
  7. FEBURIC [Concomitant]
     Active Substance: FEBUXOSTAT
     Dosage: 10 MG, QD
     Route: 048
     Dates: start: 20161122
  8. JUSO [Concomitant]
     Active Substance: SODIUM BICARBONATE
     Dosage: 1000 MG, QD
     Route: 048
     Dates: start: 20151222
  9. ARGAMATE [Concomitant]
     Active Substance: CALCIUM POLYSTYRENE SULFONATE
     Dosage: 11.2 G, QD
     Route: 048
     Dates: start: 20150428
  10. FLUITRAN [Concomitant]
     Active Substance: TRICHLORMETHIAZIDE
     Dosage: 1 MG, QD
     Route: 048
     Dates: start: 20151222
  11. CALCITRIOL. [Concomitant]
     Active Substance: CALCITRIOL
     Indication: HYPERPARATHYROIDISM SECONDARY
     Dosage: 0.25 MICRO-G, QD
     Route: 048
     Dates: start: 20161122

REACTIONS (1)
  - Renal impairment [Not Recovered/Not Resolved]

NARRATIVE: CASE EVENT DATE: 20170620
